FAERS Safety Report 23930370 (Version 1)
Quarter: 2024Q2

REPORT INFORMATION
  Report Type: Report from Study
  Country: US (occurrence: US)
  Receive Date: 20240602
  Receipt Date: 20240602
  Transmission Date: 20240716
  Serious: Yes (Other)
  Sender: FDA-Public Use
  Company Number: US-GILEAD-2024-0675144

PATIENT
  Sex: Male

DRUGS (16)
  1. AZTREONAM LYSINE [Suspect]
     Active Substance: AZTREONAM LYSINE
     Indication: Cystic fibrosis lung
     Dosage: UNK, BID (ADMINISTER CAYSTON 2 TIMES DAILY CONTINUOUSLY)
     Route: 055
  2. DUPIXENT [Concomitant]
     Active Substance: DUPILUMAB
  3. ZYRTEC [Concomitant]
     Active Substance: CETIRIZINE HYDROCHLORIDE
  4. VALIUM [Concomitant]
     Active Substance: DIAZEPAM
  5. SYMBICORT [Concomitant]
     Active Substance: BUDESONIDE\FORMOTEROL FUMARATE DIHYDRATE
  6. ALBUTEROL SULFATE [Concomitant]
     Active Substance: ALBUTEROL SULFATE
  7. ACETAMINOPHEN\HYDROCODONE [Concomitant]
     Active Substance: ACETAMINOPHEN\HYDROCODONE
  8. BIFIDOBACTERIUM ANIMALIS LACTIS [Concomitant]
     Active Substance: BIFIDOBACTERIUM ANIMALIS LACTIS
  9. ALEVE [Concomitant]
     Active Substance: NAPROXEN SODIUM
  10. VITAMIN D3 [Concomitant]
     Active Substance: CHOLECALCIFEROL
  11. PULMOZYME [Concomitant]
     Active Substance: DORNASE ALFA
  12. SODIUM CHLORIDE [Concomitant]
     Active Substance: SODIUM CHLORIDE
  13. MAGNESIUM [Concomitant]
     Active Substance: MAGNESIUM
  14. KEPPRA [Concomitant]
     Active Substance: LEVETIRACETAM
  15. GABAPENTIN [Concomitant]
     Active Substance: GABAPENTIN
  16. GARLIC [Concomitant]
     Active Substance: GARLIC

REACTIONS (2)
  - Cystic fibrosis [Unknown]
  - Off label use [Unknown]
